FAERS Safety Report 19384719 (Version 1)
Quarter: 2021Q2

REPORT INFORMATION
  Report Type: Spontaneous
  Country: US (occurrence: US)
  Receive Date: 20210607
  Receipt Date: 20210607
  Transmission Date: 20210717
  Serious: No
  Sender: FDA-Public Use
  Company Number: US-PERRIGO-20US010578

PATIENT
  Age: 60 Year
  Sex: Male
  Weight: 124.72 kg

DRUGS (2)
  1. MINOXIDIL. [Suspect]
     Active Substance: MINOXIDIL
     Indication: ALOPECIA
     Dosage: 1 CAPFUL, BID
     Route: 061
     Dates: start: 20200713, end: 20200715
  2. KETOCONAZOLE. [Concomitant]
     Active Substance: KETOCONAZOLE
     Indication: ALOPECIA
     Dosage: UNK
     Route: 061
     Dates: start: 20200713, end: 20200715

REACTIONS (7)
  - Eye irritation [Recovering/Resolving]
  - Application site inflammation [Recovering/Resolving]
  - Incorrect dose administered [Recovered/Resolved]
  - Application site pruritus [Recovering/Resolving]
  - Product administration error [Recovered/Resolved]
  - Application site irritation [Recovering/Resolving]
  - Rash [Recovering/Resolving]

NARRATIVE: CASE EVENT DATE: 20200713
